FAERS Safety Report 7010581-X (Version None)
Quarter: 2010Q3

REPORT INFORMATION
  Report Type: 
  Country: None (occurrence: None)
  Receive Date: 20100923
  Receipt Date: 20100920
  Transmission Date: 20110219
  Serious: Yes (Death, Other)
  Sender: FDA-Public Use
  Company Number: US-SANOFI-AVENTIS-2010SA056828

PATIENT
  Age: 72 Year
  Sex: Female
  Weight: 113 kg

DRUGS (1)
  1. PLAVIX [Suspect]
     Route: 065
     Dates: start: 20070101, end: 20080101

REACTIONS (3)
  - DEATH [None]
  - GASTROINTESTINAL HAEMORRHAGE [None]
  - MYOCARDIAL INFARCTION [None]
